FAERS Safety Report 17225229 (Version 1)
Quarter: 2020Q1

REPORT INFORMATION
  Report Type: Spontaneous
  Country: US (occurrence: US)
  Receive Date: 20200101
  Receipt Date: 20200101
  Transmission Date: 20200409
  Serious: No
  Sender: FDA-Public Use
  Company Number: None

PATIENT
  Age: 61 Year
  Sex: Female
  Weight: 64.8 kg

DRUGS (11)
  1. ARIPIPRAZOLE. [Suspect]
     Active Substance: ARIPIPRAZOLE
     Indication: MAJOR DEPRESSION
     Dosage: ?          QUANTITY:1 TABLET(S);?
     Route: 048
     Dates: end: 20190801
  2. SPIRONOLACTONE. [Concomitant]
     Active Substance: SPIRONOLACTONE
  3. XANAX [Concomitant]
     Active Substance: ALPRAZOLAM
  4. PROBIOTICA [Concomitant]
     Active Substance: PROBIOTICS NOS
  5. TUMS [Concomitant]
     Active Substance: CALCIUM CARBONATE
  6. NEFAZADONE [Concomitant]
  7. BIO-T HORMONE PELLETS [Concomitant]
  8. ADDERALL [Concomitant]
     Active Substance: AMPHETAMINE ASPARTATE\AMPHETAMINE SULFATE\DEXTROAMPHETAMINE SACCHARATE\DEXTROAMPHETAMINE SULFATE
  9. LEVOXYL [Concomitant]
     Active Substance: LEVOTHYROXINE SODIUM
  10. EPA OMEGA [Concomitant]
  11. DEXILANT [Concomitant]
     Active Substance: DEXLANSOPRAZOLE

REACTIONS (3)
  - Product substitution issue [None]
  - Adverse drug reaction [None]
  - Therapeutic product effect decreased [None]

NARRATIVE: CASE EVENT DATE: 20190701
